FAERS Safety Report 18727477 (Version 1)
Quarter: 2021Q1

REPORT INFORMATION
  Report Type: Spontaneous
  Country: US (occurrence: US)
  Receive Date: 20210111
  Receipt Date: 20210111
  Transmission Date: 20210419
  Serious: No
  Sender: FDA-Public Use
  Company Number: US-TETRAPHASE PHARMACEUTICALS, INC.-2020TP000009

PATIENT
  Age: 60 Year
  Sex: Female

DRUGS (11)
  1. ELIQUIS [Concomitant]
     Active Substance: APIXABAN
     Indication: ANTICOAGULANT THERAPY
     Dates: start: 20200422
  2. AMIKACIN. [Concomitant]
     Active Substance: AMIKACIN
     Indication: PRODUCT USED FOR UNKNOWN INDICATION
  3. AZITHROMYCIN ANHYDROUS. [Concomitant]
     Active Substance: AZITHROMYCIN ANHYDROUS
     Indication: PNEUMONIA
     Dates: start: 20200422
  4. PREDNISONE. [Concomitant]
     Active Substance: PREDNISONE
     Indication: PRODUCT USED FOR UNKNOWN INDICATION
  5. XERAVA [Suspect]
     Active Substance: ERAVACYCLINE DIHYDROCHLORIDE
     Indication: PNEUMONIA
     Route: 042
  6. LISINOPRIL. [Concomitant]
     Active Substance: LISINOPRIL
     Indication: PRODUCT USED FOR UNKNOWN INDICATION
  7. MYCOPHENOLATE [Concomitant]
     Active Substance: MYCOPHENOLIC ACID
     Indication: PRODUCT USED FOR UNKNOWN INDICATION
  8. SIROLIMUS. [Concomitant]
     Active Substance: SIROLIMUS
     Indication: PANCREAS TRANSPLANT
  9. CEFOXITIN [Concomitant]
     Active Substance: CEFOXITIN SODIUM
     Indication: PNEUMONIA
     Dates: start: 20200422
  10. SIROLIMUS. [Concomitant]
     Active Substance: SIROLIMUS
     Indication: RENAL TRANSPLANT
  11. METOPROLOL. [Concomitant]
     Active Substance: METOPROLOL
     Indication: PRODUCT USED FOR UNKNOWN INDICATION

REACTIONS (2)
  - Blood albumin decreased [Unknown]
  - Off label use [Unknown]
